FAERS Safety Report 9478202 (Version 2)
Quarter: 2013Q3

REPORT INFORMATION
  Report Type: Report from Study
  Country: US (occurrence: US)
  Receive Date: 20130827
  Receipt Date: 20130827
  Transmission Date: 20140515
  Serious: Yes (Life-Threatening, Hospitalization, Other)
  Sender: FDA-Public Use
  Company Number: US-ABBOTT-13P-163-1121359-00

PATIENT
  Age: 17 Year
  Sex: Female
  Weight: 41.31 kg

DRUGS (5)
  1. HUMIRA [Suspect]
     Indication: COLITIS ULCERATIVE
     Route: 058
     Dates: start: 20130612
  2. HUMIRA [Suspect]
     Indication: COLITIS ULCERATIVE
     Route: 058
     Dates: start: 20130708
  3. ASACOL HD [Concomitant]
     Indication: COLITIS ULCERATIVE
     Route: 048
     Dates: start: 20130424
  4. PREDNISONE [Concomitant]
     Indication: COLITIS ULCERATIVE
     Dosage: TAPERING
     Route: 048
     Dates: start: 20130404
  5. AZATHIOPRINE [Concomitant]
     Indication: COLITIS ULCERATIVE
     Route: 048
     Dates: start: 20130523, end: 20130619

REACTIONS (25)
  - Hyperglycaemia [Recovered/Resolved]
  - Haemorrhagic anaemia [Unknown]
  - Weight decreased [Unknown]
  - Haematochezia [Unknown]
  - Hepatitis [Unknown]
  - Infection [Recovered/Resolved]
  - Bacterial sepsis [Recovered/Resolved with Sequelae]
  - Rash pustular [Recovered/Resolved]
  - Cytomegalovirus infection [Recovered/Resolved]
  - Cytomegalovirus viraemia [Recovered/Resolved]
  - Colitis ulcerative [Unknown]
  - Anaemia [Unknown]
  - Nausea [Unknown]
  - Vomiting [Unknown]
  - Abdominal pain [Unknown]
  - Cytomegalovirus infection [Unknown]
  - Sepsis [Unknown]
  - Pyrexia [Unknown]
  - Skin lesion [Unknown]
  - Hepatomegaly [Unknown]
  - Secondary immunodeficiency [Unknown]
  - Haematochezia [Unknown]
  - Abdominal pain [Unknown]
  - Muscle spasms [Unknown]
  - Defaecation urgency [Unknown]
